FAERS Safety Report 21261495 (Version 1)
Quarter: 2022Q3

REPORT INFORMATION
  Report Type: Spontaneous
  Country: US (occurrence: US)
  Receive Date: 20220827
  Receipt Date: 20220827
  Transmission Date: 20221026
  Serious: Yes (Hospitalization)
  Sender: FDA-Public Use
  Company Number: US-CADILA HEALTHCARE LIMITED-US-ZYDUS-081777

PATIENT

DRUGS (3)
  1. AZITHROMYCIN [Suspect]
     Active Substance: AZITHROMYCIN
     Indication: Antibiotic therapy
     Dosage: UNK
     Route: 042
  2. LINEZOLID [Suspect]
     Active Substance: LINEZOLID
     Indication: Antibiotic therapy
     Dosage: UNK
     Route: 042
  3. ERAVACYCLINE [Suspect]
     Active Substance: ERAVACYCLINE
     Indication: Antibiotic therapy
     Dosage: UNK
     Route: 042

REACTIONS (3)
  - Lactic acidosis [Unknown]
  - Thrombocytopenia [Unknown]
  - Hypertransaminasaemia [Unknown]
